FAERS Safety Report 17934310 (Version 1)
Quarter: 2020Q2

REPORT INFORMATION
  Report Type: Spontaneous
  Country: CA (occurrence: CA)
  Receive Date: 20200624
  Receipt Date: 20200624
  Transmission Date: 20200714
  Serious: Yes (Other)
  Sender: FDA-Public Use
  Company Number: CA-AUROBINDO-AUR-APL-2020-030320

PATIENT
  Age: 81 Year
  Sex: Female
  Weight: 65.7 kg

DRUGS (1)
  1. IRBESARTAN TABLETS [Suspect]
     Active Substance: IRBESARTAN
     Indication: HYPERTENSION
     Dosage: 150 MILLIGRAM, TWO TIMES A DAY
     Route: 048

REACTIONS (1)
  - Abdominal discomfort [Recovered/Resolved]
